FAERS Safety Report 17664801 (Version 3)
Quarter: 2020Q2

REPORT INFORMATION
  Report Type: Spontaneous
  Country: US (occurrence: US)
  Receive Date: 20200414
  Receipt Date: 20200428
  Transmission Date: 20200713
  Serious: Yes (Hospitalization)
  Sender: FDA-Public Use
  Company Number: US-SA-2020SA091589

PATIENT
  Age: 62 Year
  Sex: Male

DRUGS (1)
  1. PRALUENT [Suspect]
     Active Substance: ALIROCUMAB
     Indication: BLOOD CHOLESTEROL ABNORMAL
     Dosage: 75 MG, QOW
     Dates: start: 2018

REACTIONS (3)
  - Hospitalisation [Unknown]
  - Injection site mass [Unknown]
  - Device use issue [Unknown]

NARRATIVE: CASE EVENT DATE: 20200407
